FAERS Safety Report 20278252 (Version 1)
Quarter: 2022Q1

REPORT INFORMATION
  Report Type: Spontaneous
  Country: US (occurrence: US)
  Receive Date: 20220103
  Receipt Date: 20220103
  Transmission Date: 20220423
  Serious: No
  Sender: FDA-Public Use
  Company Number: US-ORGANON-O2112USA002612

PATIENT
  Sex: Female
  Weight: 43.991 kg

DRUGS (1)
  1. NEXPLANON [Suspect]
     Active Substance: ETONOGESTREL
     Dosage: 1 IMPLANT
     Route: 059
     Dates: start: 20210930

REACTIONS (3)
  - Weight decreased [Unknown]
  - Implant site scar [Unknown]
  - Implant site pruritus [Unknown]
